FAERS Safety Report 8501438-3 (Version None)
Quarter: 2012Q3

REPORT INFORMATION
  Report Type: 
  Country: None (occurrence: None)
  Receive Date: 20120710
  Receipt Date: 20120709
  Transmission Date: 20120928
  Serious: Yes (Death, Other)
  Sender: FDA-Public Use
  Company Number: US-ROCHE-1068562

PATIENT
  Sex: Male
  Weight: 71.732 kg

DRUGS (9)
  1. PROCHLORPERAZINE MALEATE [Concomitant]
     Indication: NAUSEA
     Dosage: EVERY 4-6 HOURS
     Route: 048
     Dates: start: 20110912
  2. XELODA [Suspect]
     Dosage: FOR 14 DAYS
     Route: 048
     Dates: start: 20110817
  3. PROCHLORPERAZINE MALEATE [Concomitant]
     Dosage: EVERY 4-6 HOURS
     Route: 048
     Dates: start: 20111031
  4. SODIUM BICARBONATE [Concomitant]
     Dates: start: 20110912
  5. OXYCODONE HCL [Concomitant]
     Dosage: EVERY 4-6 HOURS
     Dates: start: 20110912
  6. VITAMIN B-12 [Concomitant]
     Dosage: 110 MG -0.5 MG
     Dates: start: 20110912
  7. SODIUM BICARBONATE [Concomitant]
     Dates: start: 20110929
  8. XELODA [Suspect]
     Indication: COLORECTAL CANCER METASTATIC
     Dosage: FOR 14 DAYS OUT OF 21
     Route: 048
     Dates: start: 20110926
  9. CELEXA [Concomitant]
     Route: 048
     Dates: start: 20110912

REACTIONS (6)
  - STOMATITIS [None]
  - HYPOPHAGIA [None]
  - RENAL FAILURE [None]
  - UNEVALUABLE EVENT [None]
  - ERYTHEMA [None]
  - DEATH [None]
